FAERS Safety Report 5907673-2 (Version None)
Quarter: 2008Q4

REPORT INFORMATION
  Report Type: 
  Country: None (occurrence: None)
  Receive Date: 20081003
  Receipt Date: 19930819
  Transmission Date: 20090506
  Serious: Yes (Death, Other)
  Sender: FDA-Public Use
  Company Number: US-ROCHE-25890

PATIENT
  Age: 38 Year
  Sex: Female

DRUGS (1)
  1. TORADOL [Suspect]
     Route: 030
     Dates: start: 19930811, end: 19930811

REACTIONS (3)
  - ARRHYTHMIA [None]
  - CARDIO-RESPIRATORY ARREST [None]
  - DEATH [None]
